FAERS Safety Report 17914167 (Version 1)
Quarter: 2020Q2

REPORT INFORMATION
  Report Type: Spontaneous
  Country: GB (occurrence: GB)
  Receive Date: 20200618
  Receipt Date: 20200618
  Transmission Date: 20200714
  Serious: Yes (Other)
  Sender: FDA-Public Use
  Company Number: NVSC2020GB170666

PATIENT
  Age: 54 Year
  Sex: Male

DRUGS (2)
  1. HEPARIN [Concomitant]
     Active Substance: HEPARIN SODIUM
     Indication: THROMBOSIS
     Dosage: 12.5 KG/ HR
     Route: 042
  2. ARGATROBAN. [Suspect]
     Active Substance: ARGATROBAN
     Indication: ANTICOAGULANT THERAPY
     Dosage: 0.3 UG/KG/HR
     Route: 065

REACTIONS (2)
  - Haemorrhoidal haemorrhage [Unknown]
  - Off label use [Unknown]
